FAERS Safety Report 13925666 (Version 1)
Quarter: 2017Q3

REPORT INFORMATION
  Report Type: Spontaneous
  Country: CN (occurrence: CN)
  Receive Date: 20170831
  Receipt Date: 20170831
  Transmission Date: 20171127
  Serious: Yes (Other)
  Sender: FDA-Public Use
  Company Number: CN-BAYER-2017-163155

PATIENT
  Age: 38 Year
  Sex: Female

DRUGS (1)
  1. YASMIN [Suspect]
     Active Substance: DROSPIRENONE\ETHINYL ESTRADIOL
     Dosage: UNK
     Dates: start: 2017

REACTIONS (5)
  - Cervix haemorrhage uterine [None]
  - Vaginal discharge [None]
  - White blood cell count increased [None]
  - Uterine leiomyoma [None]
  - Blood triglycerides increased [None]

NARRATIVE: CASE EVENT DATE: 201708
